FAERS Safety Report 25810601 (Version 1)
Quarter: 2025Q3

REPORT INFORMATION
  Report Type: Spontaneous
  Country: KR (occurrence: KR)
  Receive Date: 20250917
  Receipt Date: 20250917
  Transmission Date: 20251021
  Serious: Yes (Life-Threatening, Hospitalization)
  Sender: CHEPLAPHARM
  Company Number: KR-ROCHE-10000383539

PATIENT
  Age: 69 Year
  Sex: Male
  Weight: 66.099 kg

DRUGS (16)
  1. VALGANCICLOVIR [Suspect]
     Active Substance: VALGANCICLOVIR
     Indication: Hepatocellular carcinoma
     Dosage: ON 15-JUL-2025, HE RECEIVED THE LAST DOSE OF VALGANCICLOVIR PRIOR TO THE EVENT ONSET.
     Route: 048
     Dates: start: 20250625, end: 20250715
  2. BEVACIZUMAB [Suspect]
     Active Substance: BEVACIZUMAB
     Indication: Hepatocellular carcinoma
     Dosage: ON 28-AUG-2025, HE RECEIVED THE LAST DOSE OF BEVACIZUMAB PRIOR TO EVENT ONSET.
     Route: 042
     Dates: start: 20250624, end: 20250624
  3. BEVACIZUMAB [Suspect]
     Active Substance: BEVACIZUMAB
     Indication: Hepatocellular carcinoma
     Dosage: ON 28-AUG-2025, HE RECEIVED THE LAST DOSE OF BEVACIZUMAB PRIOR TO EVENT ONSET.
     Route: 042
     Dates: start: 20250714, end: 20250714
  4. BEVACIZUMAB [Suspect]
     Active Substance: BEVACIZUMAB
     Indication: Hepatocellular carcinoma
     Dosage: ON 28-AUG-2025, HE RECEIVED THE LAST DOSE OF BEVACIZUMAB PRIOR TO EVENT ONSET.
     Route: 042
     Dates: start: 20250804, end: 20250804
  5. BEVACIZUMAB [Suspect]
     Active Substance: BEVACIZUMAB
     Indication: Hepatocellular carcinoma
     Dosage: ON 28-AUG-2025, HE RECEIVED THE LAST DOSE OF BEVACIZUMAB PRIOR TO EVENT ONSET.
     Route: 042
     Dates: start: 20250828, end: 20250828
  6. ATEZOLIZUMAB [Suspect]
     Active Substance: ATEZOLIZUMAB
     Indication: Hepatocellular carcinoma
     Dosage: ON 28-AUG-2025, HE RECEIVED THE LAST DOSE OF ATEZOLIZUMAB PRIOR TO EVENT ONSET.
     Route: 042
     Dates: start: 20250624, end: 20250624
  7. ATEZOLIZUMAB [Suspect]
     Active Substance: ATEZOLIZUMAB
     Indication: Hepatocellular carcinoma
     Dosage: ON 28-AUG-2025, HE RECEIVED THE LAST DOSE OF ATEZOLIZUMAB PRIOR TO EVENT ONSET.
     Route: 042
     Dates: start: 20250714, end: 20250714
  8. ATEZOLIZUMAB [Suspect]
     Active Substance: ATEZOLIZUMAB
     Indication: Hepatocellular carcinoma
     Dosage: ON 28-AUG-2025, HE RECEIVED THE LAST DOSE OF ATEZOLIZUMAB PRIOR TO EVENT ONSET.
     Route: 042
     Dates: start: 20250804, end: 20250804
  9. ATEZOLIZUMAB [Suspect]
     Active Substance: ATEZOLIZUMAB
     Indication: Hepatocellular carcinoma
     Dosage: ON 28-AUG-2025, HE RECEIVED THE LAST DOSE OF ATEZOLIZUMAB PRIOR TO EVENT ONSET.
     Route: 042
     Dates: start: 20250828, end: 20250828
  10. GEMIGLIPTIN\METFORMIN [Concomitant]
     Active Substance: GEMIGLIPTIN\METFORMIN
     Dates: start: 20231206
  11. Kanarb [Concomitant]
     Dates: start: 20231206
  12. ENTECAVIR [Concomitant]
     Active Substance: ENTECAVIR
     Dates: start: 20231124
  13. HARNAL [Concomitant]
     Active Substance: TAMSULOSIN HYDROCHLORIDE
     Dates: start: 20231124
  14. URSODIOL [Concomitant]
     Active Substance: URSODIOL
     Dates: start: 20231124
  15. ATORVASTATIN CALCIUM\EZETIMIBE [Concomitant]
     Active Substance: ATORVASTATIN CALCIUM\EZETIMIBE
     Dates: start: 20231206
  16. ACETAMINOPHEN\TRAMADOL [Concomitant]
     Active Substance: ACETAMINOPHEN\TRAMADOL
     Dates: start: 20250626

REACTIONS (2)
  - Gastrointestinal haemorrhage [Recovering/Resolving]
  - Off label use [Unknown]

NARRATIVE: CASE EVENT DATE: 20250625
